FAERS Safety Report 17390018 (Version 1)
Quarter: 2020Q1

REPORT INFORMATION
  Report Type: Spontaneous
  Country: CH (occurrence: CH)
  Receive Date: 20200207
  Receipt Date: 20200207
  Transmission Date: 20200409
  Serious: Yes (Hospitalization, Other)
  Sender: FDA-Public Use
  Company Number: CH-009507513-2002CHE001455

PATIENT
  Age: 47 Year
  Sex: Male

DRUGS (1)
  1. PEMBROLIZUMAB. [Suspect]
     Active Substance: PEMBROLIZUMAB
     Indication: DIFFUSE LARGE B-CELL LYMPHOMA
     Dosage: 2 MILLIGRAM/KILOGRAM, Q3W
     Dates: start: 201802

REACTIONS (2)
  - Product use in unapproved indication [Unknown]
  - Graft versus host disease in lung [Not Recovered/Not Resolved]

NARRATIVE: CASE EVENT DATE: 2018
